FAERS Safety Report 4518823-7 (Version None)
Quarter: 2004Q4

REPORT INFORMATION
  Report Type: 
  Country: None (occurrence: None)
  Receive Date: 20041206
  Receipt Date: 20041122
  Transmission Date: 20050328
  Serious: Yes (Hospitalization)
  Sender: FDA-Public Use
  Company Number: JP-JNJFOC-20041106060

PATIENT
  Sex: Female
  Weight: 63 kg

DRUGS (4)
  1. REMICADE [Suspect]
     Route: 042
  2. REMICADE [Suspect]
     Route: 042
  3. REMICADE [Suspect]
     Indication: RHEUMATOID ARTHRITIS
     Route: 042
  4. RHEUMATREX [Suspect]
     Indication: RHEUMATOID ARTHRITIS
     Route: 049

REACTIONS (7)
  - CUSHINGOID [None]
  - DRUG INTERACTION [None]
  - DYSPNOEA [None]
  - FATIGUE [None]
  - FUNGAL INFECTION [None]
  - INTERSTITIAL LUNG DISEASE [None]
  - RENAL IMPAIRMENT [None]
